FAERS Safety Report 10149115 (Version 1)
Quarter: 2014Q2

REPORT INFORMATION
  Report Type: Spontaneous
  Country: KR (occurrence: None)
  Receive Date: 20140430
  Receipt Date: 20140430
  Transmission Date: 20141212
  Serious: Yes (Hospitalization)
  Sender: FDA-Public Use
  Company Number: ANI_2014_1365473

PATIENT
  Age: 49 Year
  Sex: Male

DRUGS (9)
  1. PHENYTOIN [Suspect]
     Indication: SUICIDE ATTEMPT
     Dosage: 50 CAPSULES ORALLY FOR 1 DOSE
     Route: 048
  2. CEFOTAXIME [Suspect]
     Indication: PNEUMONIA
  3. ZIDOVUDINE [Concomitant]
  4. LAMIVUDINE [Concomitant]
  5. LOPINAVIR [Concomitant]
  6. RITONAVIR [Concomitant]
  7. ABACAVIR [Concomitant]
  8. VITAMIN C [Concomitant]
  9. VITAMIN B [Concomitant]

REACTIONS (7)
  - Acute respiratory failure [None]
  - Intentional overdose [None]
  - Toxicity to various agents [None]
  - Aspartate aminotransferase increased [None]
  - Alanine aminotransferase increased [None]
  - Pneumonia [None]
  - Suicide attempt [None]
